FAERS Safety Report 6402666-3 (Version None)
Quarter: 2009Q4

REPORT INFORMATION
  Report Type: 
  Country: None (occurrence: None)
  Receive Date: 20091009
  Receipt Date: 20090930
  Transmission Date: 20100525
  Serious: Yes (Life-Threatening, Hospitalization)
  Sender: FDA-Public Use
  Company Number: ADR34312009

PATIENT
  Age: 60 Year
  Sex: Female

DRUGS (8)
  1. CIPROFLOXACIN [Suspect]
     Dates: start: 20080426, end: 20080429
  2. METRONIDAZOLE [Concomitant]
  3. WARFARIN SODIUM [Concomitant]
  4. BENDROFLUMETHIAZIDE [Concomitant]
  5. BISOPROLOL [Concomitant]
  6. CARBAMAZEPINE [Concomitant]
  7. PANTOPRAZOLE SODIUM [Concomitant]
  8. LOSARTAN [Concomitant]

REACTIONS (4)
  - DRUG INTERACTION [None]
  - HAEMATOMA [None]
  - HAEMATOMA INFECTION [None]
  - INTERNATIONAL NORMALISED RATIO INCREASED [None]
